FAERS Safety Report 17762265 (Version 1)
Quarter: 2020Q2

REPORT INFORMATION
  Report Type: Spontaneous
  Country: CA (occurrence: CA)
  Receive Date: 20200508
  Receipt Date: 20200508
  Transmission Date: 20200714
  Serious: Yes (Other)
  Sender: FDA-Public Use
  Company Number: CA-TEVA-2020-CA-1167837

PATIENT
  Age: 36 Year
  Sex: Female

DRUGS (1)
  1. TEVA-AMOXICILLIN 500MG [Suspect]
     Active Substance: AMOXICILLIN
     Indication: ANTIVIRAL PROPHYLAXIS
     Dosage: 1500 MILLIGRAM DAILY; INTERVAL: 8 HOURS. 4 DOSAGES.
     Dates: start: 20200106, end: 20200107

REACTIONS (6)
  - Exposure via breast milk [Unknown]
  - Pruritus [Recovered/Resolved]
  - Prolonged labour [Unknown]
  - Maternal exposure during pregnancy [Unknown]
  - Normal newborn [Unknown]
  - Postoperative wound infection [Recovering/Resolving]

NARRATIVE: CASE EVENT DATE: 2020
